FAERS Safety Report 5869612-2 (Version None)
Quarter: 2008Q3

REPORT INFORMATION
  Report Type: 
  Country: None (occurrence: None)
  Receive Date: 20080904
  Receipt Date: 20080502
  Transmission Date: 20090109
  Serious: No
  Sender: FDA-Public Use
  Company Number: US-KINGPHARMUSA00001-K200800515

PATIENT

DRUGS (10)
  1. CYTOMEL [Suspect]
     Indication: HYPOTHYROIDISM
     Dosage: 25 MCG, QD
     Route: 048
     Dates: start: 20070401
  2. CYTOMEL [Suspect]
     Dosage: 25 MCG, QD
     Route: 048
  3. SYNTHROID [Concomitant]
     Indication: HYPOTHYROIDISM
     Dosage: 25 MG, QD
     Route: 048
     Dates: start: 19930101
  4. PROVIGIL [Concomitant]
     Dates: start: 20070901
  5. BENICAR [Concomitant]
     Indication: HYPERTENSION
  6. NEURONTIN [Concomitant]
     Indication: FIBROMYALGIA
  7. LIBRAX     /00033301/ [Concomitant]
     Indication: IRRITABLE BOWEL SYNDROME
  8. ACIPHEX [Concomitant]
     Dosage: UNK, BID
  9. SUPPLEMENTS [Concomitant]
  10. DOMPERIDONE [Concomitant]
     Indication: IRRITABLE BOWEL SYNDROME
     Dosage: UNK, UNK

REACTIONS (1)
  - DYSPNOEA [None]
